FAERS Safety Report 7198109-5 (Version None)
Quarter: 2010Q4

REPORT INFORMATION
  Report Type: 
  Country: None (occurrence: None)
  Receive Date: 20101223
  Receipt Date: 20101223
  Transmission Date: 20110411
  Serious: No
  Sender: FDA-Public Use
  Company Number: None

PATIENT
  Age: 51 Year
  Sex: Female

DRUGS (5)
  1. FERAHEME [Suspect]
     Indication: ANAEMIA
     Dosage: 510MG IV X1 ROUTE 040
     Route: 042
     Dates: start: 20101210
  2. AMLODIPINE [Concomitant]
  3. METFORMIN [Concomitant]
  4. BENACAR [Concomitant]
  5. CRESTOR [Concomitant]

REACTIONS (2)
  - PRURITUS [None]
  - TONGUE DISORDER [None]
